FAERS Safety Report 20144786 (Version 3)
Quarter: 2022Q1

REPORT INFORMATION
  Report Type: Spontaneous
  Country: US (occurrence: US)
  Receive Date: 20211203
  Receipt Date: 20220202
  Transmission Date: 20220423
  Serious: No
  Sender: FDA-Public Use
  Company Number: US-GLAXOSMITHKLINE-US2021AMR246285

PATIENT
  Sex: Female

DRUGS (1)
  1. REQUIP [Suspect]
     Active Substance: ROPINIROLE HYDROCHLORIDE
     Indication: Restless legs syndrome
     Dosage: UNK
     Route: 048
     Dates: start: 2016, end: 20211116

REACTIONS (4)
  - Anxiety [Unknown]
  - Mental disorder [Unknown]
  - Emotional disorder [Unknown]
  - Gambling [Recovering/Resolving]

NARRATIVE: CASE EVENT DATE: 20190101
